FAERS Safety Report 10607014 (Version 1)
Quarter: 2014Q4

REPORT INFORMATION
  Report Type: Spontaneous
  Country: US (occurrence: None)
  Receive Date: 20141124
  Receipt Date: 20141124
  Transmission Date: 20150529
  Serious: Yes (Hospitalization)
  Sender: FDA-Public Use
  Company Number: None

PATIENT
  Age: 64 Year
  Sex: Female
  Weight: 65.5 kg

DRUGS (6)
  1. CELEBREX [Suspect]
     Active Substance: CELECOXIB
     Dosage: RECENTLY RESUMED AFTER 7WK STOP
     Route: 048
  2. LEVOTHYROXINE [Concomitant]
     Active Substance: LEVOTHYROXINE
  3. TRAMADOL [Concomitant]
     Active Substance: TRAMADOL
  4. MVI [Concomitant]
     Active Substance: VITAMINS
  5. PRAVACHOL [Concomitant]
     Active Substance: PRAVASTATIN SODIUM
  6. IBUPROFEN. [Suspect]
     Active Substance: IBUPROFEN
     Indication: ROTATOR CUFF SYNDROME
     Dosage: SEVERAL TIMES / DAY
     Route: 048

REACTIONS (4)
  - Upper gastrointestinal haemorrhage [None]
  - Haemorrhagic anaemia [None]
  - Gastric ulcer [None]
  - Gastritis [None]

NARRATIVE: CASE EVENT DATE: 20140517
